FAERS Safety Report 23049302 (Version 3)
Quarter: 2023Q4

REPORT INFORMATION
  Report Type: Spontaneous
  Country: US (occurrence: US)
  Receive Date: 20231010
  Receipt Date: 20231025
  Transmission Date: 20240109
  Serious: Yes (Hospitalization, Other)
  Sender: FDA-Public Use
  Company Number: US-PROCTER_AND_GAMBLE-PH23009034

PATIENT
  Age: 72 Year
  Sex: Female

DRUGS (11)
  1. OXYMETAZOLINE [Suspect]
     Active Substance: OXYMETAZOLINE
     Dosage: 4 SPRAY (2-4 SPRAYS)
     Route: 045
  2. OXYMETAZOLINE [Suspect]
     Active Substance: OXYMETAZOLINE
     Dosage: 2 SPRAY
     Route: 045
  3. METOPROLOL [Concomitant]
     Active Substance: METOPROLOL
     Indication: Hypertension
     Dosage: 50 MILLIGRAM, MORNING, BLOOD PRESSURE HAS BEEN CONTROLLED ON THIS DOSE FOR YEARS
     Route: 048
  4. METOPROLOL [Concomitant]
     Active Substance: METOPROLOL
     Dosage: AUGMENTED
  5. PROPOFOL [Concomitant]
     Active Substance: PROPOFOL
     Dosage: 150 MILLIGRAM, 1 TOTAL
  6. Laryngeal mask airway [Concomitant]
  7. Pledgelets soaked in this medication [Concomitant]
     Dosage: 2 PLEDGELETS SOAKED IN THIS MEDICATION WERE PLACED
  8. LACTATED RINGERS SOLUTION [Concomitant]
     Active Substance: CALCIUM CHLORIDE\POTASSIUM CHLORIDE\SODIUM CHLORIDE\SODIUM LACTATE
     Dosage: 100 MILLILITER, TOTAL 1
  9. OXYGEN [Concomitant]
     Active Substance: OXYGEN
     Dosage: PATIENT REMAINED ON 1 TO 2 L OF OXYGEN
  10. OXYGEN [Concomitant]
     Active Substance: OXYGEN
     Dosage: 6 L OF OXYGEN VIA NASAL CANNULA
  11. OXYGEN [Concomitant]
     Active Substance: OXYGEN
     Dosage: PATIENT HAS BEEN WEANED TO 2 L SUPPLEMENTAL OXYGEN

REACTIONS (19)
  - Acute pulmonary oedema [Recovered/Resolved]
  - Pulmonary congestion [Unknown]
  - Myocardial necrosis marker increased [Unknown]
  - Sinus bradycardia [Unknown]
  - Hypoxia [Unknown]
  - Pulmonary oedema [Unknown]
  - Oxygen saturation decreased [Recovering/Resolving]
  - Electrocardiogram ST segment depression [Unknown]
  - Blood pressure increased [Unknown]
  - Heart rate decreased [Unknown]
  - Troponin increased [Unknown]
  - Brain natriuretic peptide increased [Unknown]
  - Blood pressure systolic decreased [Unknown]
  - Hypervolaemia [Unknown]
  - Hypertension [Recovered/Resolved]
  - Overdose [Unknown]
  - Wrong technique in product usage process [Unknown]
  - Product use in unapproved indication [Unknown]
  - Off label use [Unknown]
